FAERS Safety Report 6122144-9 (Version None)
Quarter: 2009Q1

REPORT INFORMATION
  Report Type: 
  Country: None (occurrence: None)
  Receive Date: 20090318
  Receipt Date: 20090309
  Transmission Date: 20090719
  Serious: Yes (Other)
  Sender: FDA-Public Use
  Company Number: PHHY2009BR08689

PATIENT
  Age: 59 Year
  Sex: Female
  Weight: 49 kg

DRUGS (2)
  1. DIOVAN HCT [Suspect]
     Indication: HYPERTENSION
     Dosage: 160/25 MG (1DF DAILY)
     Route: 048
     Dates: start: 20090227
  2. CRESTOR [Concomitant]
     Indication: BLOOD CHOLESTEROL ABNORMAL
     Dosage: 10 MG (1DF DAILY)

REACTIONS (8)
  - ABASIA [None]
  - ABNORMAL SENSATION IN EYE [None]
  - ASTHENIA [None]
  - BLOOD PRESSURE INADEQUATELY CONTROLLED [None]
  - DIZZINESS [None]
  - THYROID NEOPLASM [None]
  - THYROID NODULE REMOVAL [None]
  - VOMITING [None]
